FAERS Safety Report 17275756 (Version 1)
Quarter: 2020Q1

REPORT INFORMATION
  Report Type: Spontaneous
  Country: CA (occurrence: CA)
  Receive Date: 20200116
  Receipt Date: 20200116
  Transmission Date: 20200409
  Serious: Yes (Hospitalization, Other)
  Sender: FDA-Public Use
  Company Number: CA-TEVA-2020-CA-1168192

PATIENT
  Age: 29 Year
  Sex: Female
  Weight: 63 kg

DRUGS (3)
  1. TERBINAFINE. [Suspect]
     Active Substance: TERBINAFINE
     Indication: FUNGAL SKIN INFECTION
     Dosage: 250 MILLIGRAM DAILY;
     Route: 048
  2. MIRENA [Concomitant]
     Active Substance: LEVONORGESTREL
     Dosage: INSERT (EXTENDEDRELEASE)
  3. NUVARING [Concomitant]
     Active Substance: ETHINYL ESTRADIOL\ETONOGESTREL
     Dosage: RING (SLOWRELEASE)

REACTIONS (1)
  - Immune thrombocytopenic purpura [Unknown]
